FAERS Safety Report 17431136 (Version 1)
Quarter: 2020Q1

REPORT INFORMATION
  Report Type: Spontaneous
  Country: GB (occurrence: GB)
  Receive Date: 20200218
  Receipt Date: 20200218
  Transmission Date: 20200409
  Serious: Yes (Hospitalization)
  Sender: FDA-Public Use
  Company Number: GB-JNJFOC-20200209905

PATIENT
  Age: 61 Year
  Sex: Male

DRUGS (7)
  1. ASPRIN [Concomitant]
     Active Substance: ASPIRIN
  2. DEPAKOTE [Concomitant]
     Active Substance: DIVALPROEX SODIUM
     Indication: PSYCHOTIC DISORDER
  3. HALDOL DECANOAS [Suspect]
     Active Substance: HALOPERIDOL DECANOATE
     Indication: PRODUCT USED FOR UNKNOWN INDICATION
     Route: 030
  4. CLONAZEPAM. [Concomitant]
     Active Substance: CLONAZEPAM
     Indication: PSYCHOTIC DISORDER
  5. ASENAPINE. [Concomitant]
     Active Substance: ASENAPINE
     Indication: PSYCHOTIC DISORDER
  6. HALDOL DECANOAS [Suspect]
     Active Substance: HALOPERIDOL DECANOATE
     Route: 030
     Dates: start: 202001
  7. STATIN                             /00848101/ [Concomitant]
     Active Substance: SIMVASTATIN

REACTIONS (13)
  - Eye movement disorder [Unknown]
  - Hypotension [Unknown]
  - Inappropriate schedule of product administration [Unknown]
  - Hypersomnia [Unknown]
  - Aphasia [Unknown]
  - Rhinorrhoea [Unknown]
  - Oedema [Unknown]
  - Off label use [Unknown]
  - Tremor [Unknown]
  - Gait disturbance [Unknown]
  - Face oedema [Unknown]
  - Amnesia [Unknown]
  - Pollakiuria [Unknown]

NARRATIVE: CASE EVENT DATE: 202001
